FAERS Safety Report 4800206-3 (Version None)
Quarter: 2005Q4

REPORT INFORMATION
  Report Type: 
  Country: None (occurrence: None)
  Receive Date: 20051017
  Receipt Date: 20050606
  Transmission Date: 20060501
  Serious: Yes (Death, Life-Threatening)
  Sender: FDA-Public Use
  Company Number: GB-ABBOTT-05P-167-0302486-00

PATIENT
  Age: 68 Year
  Sex: Male

DRUGS (5)
  1. HUMIRA [Suspect]
     Indication: RHEUMATOID ARTHRITIS
     Route: 058
     Dates: start: 20040615, end: 20050120
  2. PREDNISOLONE [Concomitant]
     Indication: RHEUMATOID ARTHRITIS
     Route: 048
     Dates: start: 20040525, end: 20050401
  3. ALENDRONATE SODIUM [Concomitant]
     Indication: OSTEOPOROSIS
     Route: 048
     Dates: start: 20030728, end: 20050401
  4. ACETAMINOPHEN W/ CODEINE [Concomitant]
     Indication: RHEUMATOID ARTHRITIS
     Dates: start: 19980101
  5. CHLORPHENIRAMINE MALEATE [Concomitant]
     Indication: RASH
     Route: 048
     Dates: start: 20040615, end: 20040920

REACTIONS (3)
  - LYMPHADENOPATHY MEDIASTINAL [None]
  - METASTASES TO LIVER [None]
  - RECTAL NEOPLASM [None]
